FAERS Safety Report 8792013 (Version 1)
Quarter: 2012Q4

REPORT INFORMATION
  Report Type: 
  Country: GB (occurrence: GB)
  Receive Date: 20120918
  Receipt Date: 20120918
  Transmission Date: 20130627
  Serious: Yes (Death, Other)
  Sender: FDA-Public Use
  Company Number: GB-ABBOTT-12P-167-0973544-00

PATIENT
  Age: 1 Year
  Sex: Male

DRUGS (3)
  1. IBUPROFEN [Suspect]
     Indication: VARICELLA
     Dosage: Dosage form: Unspecified
  2. PARACETAMOL [Suspect]
     Indication: VARICELLA
     Dosage: Doseage form: Unknown
  3. ANTIVIRAL NOS [Suspect]
     Indication: VARICELLA

REACTIONS (6)
  - Pneumonia [Fatal]
  - Tremor [Not Recovered/Not Resolved]
  - Respiratory disorder [Not Recovered/Not Resolved]
  - Pyrexia [Not Recovered/Not Resolved]
  - Rash [Not Recovered/Not Resolved]
  - Pain [Not Recovered/Not Resolved]
